FAERS Safety Report 16737394 (Version 1)
Quarter: 2019Q3

REPORT INFORMATION
  Report Type: Spontaneous
  Country: FR (occurrence: FR)
  Receive Date: 20190823
  Receipt Date: 20190823
  Transmission Date: 20191005
  Serious: Yes (Hospitalization)
  Sender: FDA-Public Use
  Company Number: FR-MYLANLABS-2019M1078628

PATIENT
  Age: 63 Year
  Sex: Female
  Weight: 73 kg

DRUGS (2)
  1. IBRANCE [Suspect]
     Active Substance: PALBOCICLIB
     Indication: NEOPLASM MALIGNANT
     Dosage: 125 MILLIGRAM
     Route: 048
     Dates: start: 201810
  2. LETROZOLE. [Suspect]
     Active Substance: LETROZOLE
     Indication: NEOPLASM MALIGNANT
     Dosage: 2.5 MILLIGRAM
     Route: 048
     Dates: start: 201810

REACTIONS (2)
  - Peritonitis [Recovered/Resolved]
  - Gastroduodenal ulcer [Recovered/Resolved]

NARRATIVE: CASE EVENT DATE: 201902
